FAERS Safety Report 20550296 (Version 1)
Quarter: 2022Q1

REPORT INFORMATION
  Report Type: Spontaneous
  Country: US (occurrence: US)
  Receive Date: 20220304
  Receipt Date: 20220304
  Transmission Date: 20220423
  Serious: Yes (Hospitalization, Other)
  Sender: FDA-Public Use
  Company Number: US-PURDUE-USA-2020-0282963

PATIENT
  Sex: Male

DRUGS (4)
  1. OXYCONTIN [Suspect]
     Active Substance: OXYCODONE HYDROCHLORIDE
     Indication: Joint injury
     Dosage: UNKNOWN
     Route: 048
     Dates: start: 1999, end: 201707
  2. ACETAMINOPHEN\OXYCODONE HYDROCHLORIDE\OXYCODONE TEREPHTHALATE [Suspect]
     Active Substance: ACETAMINOPHEN\OXYCODONE HYDROCHLORIDE\OXYCODONE TEREPHTHALATE
     Indication: Joint injury
     Dosage: UNKNOWN
     Route: 065
     Dates: start: 1999, end: 201707
  3. ROXICODONE [Suspect]
     Active Substance: OXYCODONE HYDROCHLORIDE
     Indication: Joint injury
     Dosage: UNKNOWN
     Route: 065
     Dates: start: 1999, end: 201707
  4. HEROIN [Suspect]
     Active Substance: DIAMORPHINE
     Indication: Joint injury
     Dosage: UNKNOWN
     Route: 065
     Dates: start: 1999, end: 201707

REACTIONS (3)
  - Overdose [Unknown]
  - Drug dependence [Unknown]
  - Pain [Unknown]
